FAERS Safety Report 6768271-4 (Version None)
Quarter: 2010Q2

REPORT INFORMATION
  Report Type: 
  Country: None (occurrence: None)
  Receive Date: 20100614
  Receipt Date: 20100601
  Transmission Date: 20101027
  Serious: Yes (Hospitalization)
  Sender: FDA-Public Use
  Company Number: CA-GENENTECH-302699

PATIENT
  Sex: Female

DRUGS (1)
  1. XOLAIR [Suspect]
     Indication: ASTHMA
     Dosage: 300 MG, 1/MONTH
     Route: 058
     Dates: start: 20060215

REACTIONS (5)
  - BACK PAIN [None]
  - BALANCE DISORDER [None]
  - BEDRIDDEN [None]
  - FALL [None]
  - SPINAL CORD DISORDER [None]
